FAERS Safety Report 12364706 (Version 1)
Quarter: 2016Q2

REPORT INFORMATION
  Report Type: Spontaneous
  Country: US (occurrence: None)
  Receive Date: 20160512
  Receipt Date: 20160512
  Transmission Date: 20160815
  Serious: No
  Sender: FDA-Public Use
  Company Number: None

PATIENT
  Age: 58 Year
  Sex: Male
  Weight: 92.53 kg

DRUGS (2)
  1. VANCOMYCIN, 10 GM EITHER HOSPITA OR APP WERE USED [Suspect]
     Active Substance: VANCOMYCIN
     Indication: BURNS SECOND DEGREE
     Route: 041
     Dates: start: 20160508, end: 20160509
  2. PIPERACILLIN/TAZOBACTAM [Concomitant]
     Active Substance: PIPERACILLIN SODIUM\TAZOBACTAM SODIUM

REACTIONS (2)
  - Blood creatinine increased [None]
  - Product quality issue [None]

NARRATIVE: CASE EVENT DATE: 20160509
